FAERS Safety Report 9403814 (Version 2)
Quarter: 2013Q3

REPORT INFORMATION
  Report Type: Report from Study
  Country: FR (occurrence: FR)
  Receive Date: 20130717
  Receipt Date: 20130722
  Transmission Date: 20140515
  Serious: Yes (Hospitalization)
  Sender: FDA-Public Use
  Company Number: FR-ROCHE-1246167

PATIENT
  Age: 66 Year
  Sex: Female
  Weight: 79 kg

DRUGS (21)
  1. TOCILIZUMAB [Suspect]
     Indication: RHEUMATOID ARTHRITIS
     Route: 041
     Dates: start: 20110926
  2. TOCILIZUMAB [Suspect]
     Route: 041
     Dates: start: 20111202
  3. TOCILIZUMAB [Suspect]
     Route: 041
     Dates: start: 20120104
  4. TOCILIZUMAB [Suspect]
     Route: 041
     Dates: start: 20120202
  5. TOCILIZUMAB [Suspect]
     Route: 041
     Dates: start: 20120301
  6. TOCILIZUMAB [Suspect]
     Route: 041
     Dates: start: 20120330
  7. TOCILIZUMAB [Suspect]
     Route: 041
     Dates: start: 20120614
  8. TOCILIZUMAB [Suspect]
     Route: 041
     Dates: start: 20120712
  9. TOCILIZUMAB [Suspect]
     Route: 041
     Dates: start: 20120809
  10. TOCILIZUMAB [Suspect]
     Route: 041
     Dates: start: 20120906
  11. TOCILIZUMAB [Suspect]
     Route: 041
     Dates: start: 20121004
  12. TOCILIZUMAB [Suspect]
     Route: 041
     Dates: start: 20121031
  13. TOCILIZUMAB [Suspect]
     Route: 041
     Dates: start: 20121129
  14. TOCILIZUMAB [Suspect]
     Route: 041
     Dates: start: 20121231
  15. TOCILIZUMAB [Suspect]
     Route: 041
     Dates: start: 20130128
  16. TOCILIZUMAB [Suspect]
     Route: 041
     Dates: start: 20130228
  17. METHOTREXATE [Concomitant]
     Indication: RHEUMATOID ARTHRITIS
     Route: 065
  18. CELEBREX [Concomitant]
     Route: 065
  19. SPECIAFOLDINE [Concomitant]
  20. TRAMADOL [Concomitant]
  21. OMEPRAZOLE [Concomitant]

REACTIONS (4)
  - Knee arthroplasty [Recovered/Resolved]
  - Oral herpes [Recovered/Resolved]
  - Cystitis [Recovered/Resolved]
  - Ear infection [Recovered/Resolved]
